FAERS Safety Report 23960683 (Version 1)
Quarter: 2024Q2

REPORT INFORMATION
  Report Type: Spontaneous
  Country: CA (occurrence: CA)
  Receive Date: 20240611
  Receipt Date: 20240611
  Transmission Date: 20240716
  Serious: Yes (Death)
  Sender: FDA-Public Use
  Company Number: None

PATIENT
  Age: 52 Year
  Sex: Male

DRUGS (10)
  1. CAPECITABINE [Suspect]
     Active Substance: CAPECITABINE
     Indication: Pancreatic carcinoma
  2. DOCETAXEL [Suspect]
     Active Substance: DOCETAXEL\DOCETAXEL ANHYDROUS
     Indication: Pancreatic carcinoma
     Route: 065
  3. OXALIPLATIN [Suspect]
     Active Substance: OXALIPLATIN
     Indication: Pancreatic carcinoma metastatic
  4. PEMETREXED [Suspect]
     Active Substance: PEMETREXED
     Indication: Pancreatic carcinoma metastatic
     Dosage: POWDER FOR SOLUTION
  5. BEVACIZUMAB [Suspect]
     Active Substance: BEVACIZUMAB
     Indication: Pancreatic carcinoma
     Route: 042
  6. PEMBROLIZUMAB [Suspect]
     Active Substance: PEMBROLIZUMAB
     Indication: Pancreatic carcinoma metastatic
  7. LORLATINIB [Suspect]
     Active Substance: LORLATINIB
     Indication: Pancreatic carcinoma
  8. PERJETA [Suspect]
     Active Substance: PERTUZUMAB
     Indication: Pancreatic carcinoma
     Route: 042
  9. OSIMERTINIB [Suspect]
     Active Substance: OSIMERTINIB
     Indication: Pancreatic carcinoma
  10. TRASTUZUMAB [Suspect]
     Active Substance: TRASTUZUMAB
     Indication: Pancreatic carcinoma

REACTIONS (2)
  - Disease progression [Fatal]
  - Treatment failure [Fatal]
